FAERS Safety Report 10064398 (Version 2)
Quarter: 2014Q2

REPORT INFORMATION
  Report Type: Spontaneous
  Country: JP (occurrence: JP)
  Receive Date: 20140408
  Receipt Date: 20140408
  Transmission Date: 20141212
  Serious: Yes (Other)
  Sender: FDA-Public Use
  Company Number: JP-JNJFOC-20140217406

PATIENT
  Age: 66 Year
  Sex: Female

DRUGS (5)
  1. REMICADE [Suspect]
     Indication: RHEUMATOID ARTHRITIS
     Route: 042
  2. REMICADE [Suspect]
     Indication: RHEUMATOID ARTHRITIS
     Route: 042
  3. METHOTREXATE [Suspect]
     Indication: RHEUMATOID ARTHRITIS
     Route: 065
  4. METHOTREXATE [Suspect]
     Indication: RHEUMATOID ARTHRITIS
     Route: 065
  5. ENBREL [Suspect]
     Indication: RHEUMATOID ARTHRITIS
     Route: 065

REACTIONS (8)
  - Cellulitis [Unknown]
  - Hip arthroplasty [Unknown]
  - Cellulitis [Unknown]
  - Bronchitis chronic [Unknown]
  - Pruritus generalised [Recovered/Resolved]
  - Lung disorder [Unknown]
  - Arthralgia [Unknown]
  - Oropharyngeal discomfort [Not Recovered/Not Resolved]
